FAERS Safety Report 12369942 (Version 5)
Quarter: 2016Q3

REPORT INFORMATION
  Report Type: Report from Study
  Country: CA (occurrence: CA)
  Receive Date: 20160516
  Receipt Date: 20160923
  Transmission Date: 20161109
  Serious: Yes (Other)
  Sender: FDA-Public Use
  Company Number: CA-GILEAD-2016-0200226

PATIENT
  Age: 55 Year
  Sex: Male

DRUGS (12)
  1. RABEPRAZOLE [Concomitant]
     Active Substance: RABEPRAZOLE
     Dosage: 20 MG, QD
     Route: 048
  2. ATROVENT [Concomitant]
     Active Substance: IPRATROPIUM BROMIDE
  3. IBAVYR [Suspect]
     Active Substance: RIBAVIRIN
     Dosage: UNK
     Route: 048
  4. SOFOSBUVIR [Suspect]
     Active Substance: SOFOSBUVIR
     Dosage: 2 DF, UNK
     Route: 048
     Dates: start: 2016, end: 2016
  5. VENTOLIN [Concomitant]
     Active Substance: ALBUTEROL SULFATE
  6. IBAVYR [Suspect]
     Active Substance: RIBAVIRIN
     Indication: HEPATITIS C
     Dosage: 1200 MG, QD
     Route: 048
     Dates: start: 20160201
  7. CLONAZEPAM. [Concomitant]
     Active Substance: CLONAZEPAM
  8. SOFOSBUVIR [Suspect]
     Active Substance: SOFOSBUVIR
     Indication: HEPATITIS C
     Dosage: 400 MG, QD
     Route: 048
     Dates: start: 20160201
  9. METHADONE [Concomitant]
     Active Substance: METHADONE HYDROCHLORIDE
  10. QUETIAPINE. [Concomitant]
     Active Substance: QUETIAPINE
  11. DIAZEPAM. [Concomitant]
     Active Substance: DIAZEPAM
  12. TESTOSTERONE. [Concomitant]
     Active Substance: TESTOSTERONE

REACTIONS (8)
  - Haematochezia [Recovered/Resolved]
  - Withdrawal syndrome [Unknown]
  - Tooth loss [Not Recovered/Not Resolved]
  - Confusional state [Not Recovered/Not Resolved]
  - Irritability [Not Recovered/Not Resolved]
  - Alopecia [Not Recovered/Not Resolved]
  - Insomnia [Not Recovered/Not Resolved]
  - Accidental overdose [Recovered/Resolved]
